FAERS Safety Report 8798791 (Version 6)
Quarter: 2013Q2

REPORT INFORMATION
  Report Type: Spontaneous
  Country: US (occurrence: US)
  Receive Date: 20120920
  Receipt Date: 20130412
  Transmission Date: 20140414
  Serious: Yes (Hospitalization, Other)
  Sender: FDA-Public Use
  Company Number: US-009507513-1103USA00956

PATIENT
  Sex: Female

DRUGS (7)
  1. FOSAMAX [Suspect]
     Indication: OSTEOPENIA
     Dosage: 70 MG, QW
     Route: 048
     Dates: start: 20020821, end: 200806
  2. FOSAMAX [Suspect]
     Indication: OSTEOPENIA
     Route: 048
     Dates: start: 200802
  3. ALENDRONATE SODIUM [Suspect]
     Indication: OSTEOPENIA
     Dosage: 70 MG, UNK
     Route: 048
     Dates: start: 200807, end: 200810
  4. CALCIUM CITRATE [Concomitant]
     Dosage: 500 MG, QD
     Dates: start: 2000
  5. CALCIUM (UNSPECIFIED) [Concomitant]
     Indication: OSTEOPENIA
     Dosage: 1000 MG, QD
  6. CALCIUM CITRATE (+) VITAMIN D (UNSPECIFIED) [Concomitant]
     Dosage: 1500 MG/800 IU, QD
  7. VITAMIN D (UNSPECIFIED) [Concomitant]
     Dosage: 1000-1400 IU, QD

REACTIONS (72)
  - Fracture nonunion [Unknown]
  - Fracture [Unknown]
  - Transient global amnesia [Unknown]
  - Osteonecrosis [Not Recovered/Not Resolved]
  - Loop electrosurgical excision procedure [Unknown]
  - Adverse event [Unknown]
  - Fall [Unknown]
  - Osteoarthritis [Unknown]
  - Medical device removal [Unknown]
  - Peptic ulcer [Unknown]
  - Spinal laminectomy [Unknown]
  - Femur fracture [Unknown]
  - Peripheral nerve operation [Unknown]
  - Limb asymmetry [Unknown]
  - Toxic encephalopathy [Unknown]
  - Open reduction of fracture [Unknown]
  - Device failure [Unknown]
  - Hip arthroplasty [Unknown]
  - Adenotonsillectomy [Unknown]
  - Spinal fusion surgery [Unknown]
  - Femur fracture [Unknown]
  - Femur fracture [Unknown]
  - Oesophageal ulcer [Unknown]
  - Spinal fracture [Unknown]
  - Rib fracture [Unknown]
  - Device dislocation [Unknown]
  - Radiculopathy [Unknown]
  - Rib fracture [Unknown]
  - Cervical dysplasia [Unknown]
  - Cervix inflammation [Unknown]
  - Anxiety [Unknown]
  - Chronic obstructive pulmonary disease [Unknown]
  - Low turnover osteopathy [Unknown]
  - Mammogram abnormal [Unknown]
  - Raynaud^s phenomenon [Unknown]
  - Gastrointestinal tract adenoma [Unknown]
  - Proctitis [Unknown]
  - Crepitations [Unknown]
  - Lymphadenopathy [Unknown]
  - Hyponatraemia [Unknown]
  - Liver function test abnormal [Unknown]
  - Arthritis [Unknown]
  - Fall [Unknown]
  - Fall [Unknown]
  - Mood altered [Unknown]
  - Cognitive disorder [Unknown]
  - Depression [Unknown]
  - Vitamin D deficiency [Unknown]
  - Osteoporosis [Unknown]
  - Scoliosis [Unknown]
  - Spondylolisthesis [Unknown]
  - Spondylolysis [Unknown]
  - Spinal osteoarthritis [Unknown]
  - Gait disturbance [Unknown]
  - Hypokalaemia [Recovering/Resolving]
  - Bacterial disease carrier [Unknown]
  - Pubis fracture [Unknown]
  - Thoracic vertebral fracture [Recovering/Resolving]
  - Kyphosis [Unknown]
  - Anaemia [Unknown]
  - Osteoarthritis [Unknown]
  - Osteoarthritis [Unknown]
  - Groin pain [Unknown]
  - Pneumonia aspiration [Unknown]
  - Oedema [Unknown]
  - Body height decreased [Unknown]
  - Arthralgia [Unknown]
  - Dysphagia [Unknown]
  - Gastric ulcer [Unknown]
  - Gastritis [Unknown]
  - Gastrooesophageal reflux disease [Unknown]
  - Dysphagia [Recovering/Resolving]
